FAERS Safety Report 16308645 (Version 1)
Quarter: 2019Q2

REPORT INFORMATION
  Report Type: Spontaneous
  Country: US (occurrence: US)
  Receive Date: 20190408
  Receipt Date: 20190408
  Transmission Date: 20190711
  Serious: No
  Sender: FDA-Public Use
  Company Number: None

PATIENT
  Age: 42 Year
  Sex: Male

DRUGS (4)
  1. IMATINIB  400MG TAB (X30) [Suspect]
     Active Substance: IMATINIB
     Route: 048
     Dates: start: 201809
  2. MULTIVITAMIN [Concomitant]
     Active Substance: VITAMINS
  3. FLUCONAZOLE. [Concomitant]
     Active Substance: FLUCONAZOLE
  4. PROTONIX [Concomitant]
     Active Substance: PANTOPRAZOLE SODIUM

REACTIONS (6)
  - Dizziness [None]
  - Neck pain [None]
  - Product physical issue [None]
  - Fatigue [None]
  - Tremor [None]
  - Musculoskeletal pain [None]

NARRATIVE: CASE EVENT DATE: 201904
